FAERS Safety Report 23350440 (Version 1)
Quarter: 2023Q4

REPORT INFORMATION
  Report Type: Spontaneous
  Country: FR (occurrence: FR)
  Receive Date: 20231229
  Receipt Date: 20231229
  Transmission Date: 20240110
  Serious: Yes (Life-Threatening)
  Sender: FDA-Public Use
  Company Number: None

PATIENT
  Age: 24 Year
  Sex: Female
  Weight: 118 kg

DRUGS (8)
  1. CEFAZOLIN SODIUM [Suspect]
     Active Substance: CEFAZOLIN SODIUM
     Indication: General anaesthesia
     Dosage: 2 G, QD
     Route: 042
     Dates: start: 20231211, end: 20231211
  2. DEXAMETHASONE [Suspect]
     Active Substance: DEXAMETHASONE
     Indication: Product used for unknown indication
     Dosage: 8 MG, QD
     Route: 042
     Dates: start: 20231211, end: 20231211
  3. ESKETAMINE [Suspect]
     Active Substance: ESKETAMINE
     Indication: General anaesthesia
     Dosage: 5 MG, QD
     Route: 042
     Dates: start: 20231211, end: 20231211
  4. PROPOFOL [Suspect]
     Active Substance: PROPOFOL
     Indication: General anaesthesia
     Dosage: 280 MG, QD
     Route: 042
     Dates: start: 20231211, end: 20231211
  5. ROCURONIUM BROMIDE [Suspect]
     Active Substance: ROCURONIUM BROMIDE
     Indication: General anaesthesia
     Dosage: 100 MG, QD
     Route: 042
     Dates: start: 20231211, end: 20231211
  6. SEVOFLURANE [Suspect]
     Active Substance: SEVOFLURANE
     Indication: General anaesthesia
     Dosage: UNK UNK, QD,8 UNK,
     Route: 042
     Dates: start: 20231211, end: 20231211
  7. SUFENTANIL [Suspect]
     Active Substance: SUFENTANIL
     Indication: General anaesthesia
     Dosage: 15 UG, QD
     Route: 042
     Dates: start: 20231211, end: 20231211
  8. XYLOCAINE [Suspect]
     Active Substance: LIDOCAINE HYDROCHLORIDE
     Indication: General anaesthesia
     Dosage: 110 MG, QD
     Route: 042
     Dates: start: 20231211, end: 20231211

REACTIONS (1)
  - Anaphylactic shock [Recovered/Resolved]

NARRATIVE: CASE EVENT DATE: 20231211
